FAERS Safety Report 6142530-0 (Version None)
Quarter: 2009Q2

REPORT INFORMATION
  Report Type: 
  Country: None (occurrence: None)
  Receive Date: 20090403
  Receipt Date: 20090303
  Transmission Date: 20091009
  Serious: No
  Sender: FDA-Public Use
  Company Number: US-BAYER-200915414NA

PATIENT
  Age: 43 Year
  Sex: Male

DRUGS (3)
  1. LEVITRA [Suspect]
     Indication: ERECTILE DYSFUNCTION
     Dosage: TOTAL DAILY DOSE: 20 MG  UNIT DOSE: 20 MG
     Dates: start: 20081201
  2. EFFEXOR XR [Interacting]
     Indication: DEPRESSION
  3. EFFEXOR XR [Concomitant]
     Dates: start: 20090101

REACTIONS (1)
  - ERECTILE DYSFUNCTION [None]
